FAERS Safety Report 4322713-2 (Version None)
Quarter: 2004Q1

REPORT INFORMATION
  Report Type: 
  Country: None (occurrence: None)
  Receive Date: 20040322
  Receipt Date: 20040123
  Transmission Date: 20041129
  Serious: No
  Sender: FDA-Public Use
  Company Number: US-JNJFOC-20040105590

PATIENT
  Age: 26 Year
  Sex: Female
  Weight: 95.2554 kg

DRUGS (2)
  1. ORTHO TRI-CYCLEN LO [Suspect]
     Indication: CONTRACEPTION
     Dosage: 1 DOSE, 1 IN 1 DAY ORAL
     Route: 048
     Dates: start: 20031101
  2. CHILDREN'S TYLENOL (PARACETAMOL) [Concomitant]

REACTIONS (1)
  - MENSTRUAL DISORDER [None]
